FAERS Safety Report 15434323 (Version 2)
Quarter: 2018Q4

REPORT INFORMATION
  Report Type: Spontaneous
  Country: TR (occurrence: TR)
  Receive Date: 20180927
  Receipt Date: 20181108
  Transmission Date: 20190204
  Serious: Yes (Other)
  Sender: FDA-Public Use
  Company Number: TR-BAYER-2018-172855

PATIENT
  Age: 55 Year
  Sex: Male
  Weight: 90 kg

DRUGS (5)
  1. CODEINE [Concomitant]
     Active Substance: CODEINE
     Indication: PAIN
     Dosage: UNK, DAILY
     Route: 048
  2. CAFFEINE W/CODEINE PHOSPHATE/PARACETAMOL [Concomitant]
     Active Substance: ACETAMINOPHEN\CAFFEINE\CODEINE PHOSPHATE
     Indication: PAIN
     Dosage: UNK, DAILY
     Route: 048
  3. BELOC [Concomitant]
     Active Substance: METOPROLOL TARTRATE
     Indication: TACHYARRHYTHMIA
     Dosage: 50 MG, PRN
     Route: 048
  4. STIVARGA [Suspect]
     Active Substance: REGORAFENIB
     Indication: RECTAL CANCER
     Dosage: UNK
     Dates: start: 20171214, end: 201809
  5. CONTRAMAL RETARD [Concomitant]
     Indication: PAIN
     Dosage: UNK, DAILY
     Route: 048

REACTIONS (17)
  - Hypoaesthesia [None]
  - Hair colour changes [Not Recovered/Not Resolved]
  - Urinary tract infection [Not Recovered/Not Resolved]
  - Productive cough [Not Recovered/Not Resolved]
  - Thyroid function test abnormal [Recovered/Resolved]
  - Peripheral swelling [None]
  - Blood creatine increased [None]
  - Drug ineffective [None]
  - White blood cell count increased [Not Recovered/Not Resolved]
  - Rectal cancer [Recovering/Resolving]
  - Carbohydrate antigen 19-9 increased [Not Recovered/Not Resolved]
  - Blister [Not Recovered/Not Resolved]
  - Peripheral swelling [Not Recovered/Not Resolved]
  - Vision blurred [Not Recovered/Not Resolved]
  - Arrhythmia [None]
  - Mouth ulceration [Recovered/Resolved]
  - Heart rate increased [None]

NARRATIVE: CASE EVENT DATE: 201809
